FAERS Safety Report 4585522-5 (Version None)
Quarter: 2005Q1

REPORT INFORMATION
  Report Type: 
  Country: None (occurrence: None)
  Receive Date: 20050217
  Receipt Date: 20050125
  Transmission Date: 20050727
  Serious: Yes (Other)
  Sender: FDA-Public Use
  Company Number: JP-ROCHE-394001

PATIENT
  Age: 11 Year
  Sex: Female

DRUGS (2)
  1. TAMIFLU [Suspect]
     Route: 048
     Dates: start: 20050119, end: 20050124
  2. CALONAL [Concomitant]
     Dosage: SINGLE USE.
     Route: 048
     Dates: start: 20050119

REACTIONS (5)
  - DIARRHOEA [None]
  - DIZZINESS [None]
  - NEUTROPENIA [None]
  - VOMITING [None]
  - WHITE BLOOD CELL COUNT DECREASED [None]
